FAERS Safety Report 15121099 (Version 1)
Quarter: 2018Q3

REPORT INFORMATION
  Report Type: Spontaneous
  Country: LB (occurrence: LB)
  Receive Date: 20180709
  Receipt Date: 20180709
  Transmission Date: 20181010
  Serious: Yes (Other)
  Sender: FDA-Public Use
  Company Number: LB-CORDEN PHARMA LATINA S.P.A.-LB-2018COR000063

PATIENT

DRUGS (2)
  1. ETOPOSIDE. [Suspect]
     Active Substance: ETOPOSIDE
     Indication: NON-HODGKIN^S LYMPHOMA
     Dosage: UNK
  2. CARMUSTINE W/CYTARABINE/ETOPOSIDE/MELPHALAN [Suspect]
     Active Substance: CARMUSTINE\CYTARABINE\ETOPOSIDE\MELPHALAN
     Indication: STEM CELL TRANSPLANT
     Dosage: UNK

REACTIONS (1)
  - Pneumonia cytomegaloviral [Unknown]
